FAERS Safety Report 5634595-7 (Version None)
Quarter: 2008Q1

REPORT INFORMATION
  Report Type: 
  Country: None (occurrence: None)
  Receive Date: 20080131
  Receipt Date: 20071017
  Transmission Date: 20080703
  Serious: No
  Sender: FDA-Public Use
  Company Number: 2007-US-000254

PATIENT
  Age: 8 Year
  Sex: Male
  Weight: 20.2 kg

DRUGS (1)
  1. INCRELEX [Suspect]
     Indication: INSULIN-LIKE GROWTH FACTOR DECREASED
     Dosage: 24 MG, BID, SUBCUTANEOUS
     Route: 058
     Dates: start: 20070401, end: 20070901

REACTIONS (1)
  - HEPATIC ENZYME INCREASED [None]
